FAERS Safety Report 8617092-6 (Version None)
Quarter: 2012Q3

REPORT INFORMATION
  Report Type: 
  Country: None (occurrence: None)
  Receive Date: 20120823
  Receipt Date: 20120816
  Transmission Date: 20120928
  Serious: No
  Sender: FDA-Public Use
  Company Number: US-009507513-1208USA008511

PATIENT

DRUGS (1)
  1. SAPHRIS [Suspect]
     Indication: BIPOLAR DISORDER
     Dosage: 10 MG, HS
     Route: 060
     Dates: start: 20120201, end: 20120701

REACTIONS (2)
  - SEDATION [None]
  - INAPPROPRIATE SCHEDULE OF DRUG ADMINISTRATION [None]
